FAERS Safety Report 7047062-3 (Version None)
Quarter: 2010Q4

REPORT INFORMATION
  Report Type: 
  Country: None (occurrence: None)
  Receive Date: 20101012
  Receipt Date: 20100812
  Transmission Date: 20110411
  Serious: Yes (Death, Other)
  Sender: FDA-Public Use
  Company Number: PPC201000054

PATIENT
  Age: 66 Year
  Sex: Female

DRUGS (2)
  1. AMIODARONE HCL [Suspect]
     Indication: SUPRAVENTRICULAR TACHYCARDIA
     Dosage: 400 MG, DAILY ; 200 MG, DAILY
  2. AMIODARONE HCL [Suspect]
     Indication: SUPRAVENTRICULAR TACHYCARDIA
     Dosage: 400 MG, DAILY ; 200 MG, DAILY

REACTIONS (2)
  - CARDIAC FAILURE [None]
  - HYPOTHYROIDISM [None]
